FAERS Safety Report 7198396-3 (Version None)
Quarter: 2010Q4

REPORT INFORMATION
  Report Type: 
  Country: None (occurrence: None)
  Receive Date: 20101227
  Receipt Date: 20101214
  Transmission Date: 20110411
  Serious: Yes (Other)
  Sender: FDA-Public Use
  Company Number: PHHY2010DE02260

PATIENT
  Sex: Female
  Weight: 65 kg

DRUGS (6)
  1. ACLASTA/ZOLEDRONATE [Suspect]
     Indication: OSTEOPOROSIS
     Dosage: 5 MG, ONCE YEARLY
     Route: 042
     Dates: start: 20091207, end: 20091207
  2. ACLASTA/ZOLEDRONATE [Suspect]
     Dosage: UNK
     Dates: start: 20101213
  3. CALCIUM [Concomitant]
     Indication: OSTEOPOROSIS
     Dosage: 880 IE, DAILY
  4. VITAMIN D [Concomitant]
     Indication: OSTEOPOROSIS
     Dosage: 1500 MG, DAILY
  5. TARGIN [Concomitant]
     Indication: PAIN
     Dosage: 50 MG/ D
  6. LYRICA [Concomitant]
     Indication: PAIN
     Dosage: 150 MG DAILY

REACTIONS (4)
  - MUCOSAL INFLAMMATION [None]
  - NASOPHARYNGITIS [None]
  - NAUSEA [None]
  - VOMITING [None]
